FAERS Safety Report 5625476-3 (Version None)
Quarter: 2008Q1

REPORT INFORMATION
  Report Type: 
  Country: None (occurrence: None)
  Receive Date: 20080207
  Receipt Date: 20080127
  Transmission Date: 20080703
  Serious: Yes (Other)
  Sender: FDA-Public Use
  Company Number: CHPA2008US01604

PATIENT
  Sex: Female

DRUGS (2)
  1. EXCEDRIN (MIGRAINE) [Suspect]
     Indication: NECK PAIN
     Dosage: ORAL
     Route: 048
  2. DRUG THERAPY NOS (DRUG THERAPY NOS) [Concomitant]

REACTIONS (1)
  - HYPERTENSION [None]
